FAERS Safety Report 23657466 (Version 1)
Quarter: 2024Q1

REPORT INFORMATION
  Report Type: Spontaneous
  Country: US (occurrence: US)
  Receive Date: 20240321
  Receipt Date: 20240321
  Transmission Date: 20240410
  Serious: Yes (Other)
  Sender: FDA-Public Use
  Company Number: US-LUOXIN-LUX-2024-US-LIT-00009

PATIENT
  Age: 58 Year
  Sex: Male

DRUGS (7)
  1. ALBUTEROL SULFATE [Suspect]
     Active Substance: ALBUTEROL SULFATE
     Indication: Asthma
  2. IPRATROPIUM BROMIDE [Suspect]
     Active Substance: IPRATROPIUM BROMIDE\IPRATROPIUM BROMIDE ANHYDROUS
     Indication: Asthma
  3. PROPOFOL [Suspect]
     Active Substance: PROPOFOL
     Indication: Asthma
  4. KETAMINE [Suspect]
     Active Substance: KETAMINE
     Indication: Asthma
  5. METHYLPREDNISOLONE [Suspect]
     Active Substance: METHYLPREDNISOLONE
     Indication: Asthma
  6. EPINEPHRINE [Suspect]
     Active Substance: EPINEPHRINE
     Indication: Asthma
  7. AMINOPHYLLINE [Suspect]
     Active Substance: AMINOPHYLLINE
     Indication: Asthma

REACTIONS (1)
  - Drug ineffective [Unknown]
